FAERS Safety Report 17064580 (Version 6)
Quarter: 2021Q2

REPORT INFORMATION
  Report Type: Other
  Country: US (occurrence: US)
  Receive Date: 20191122
  Receipt Date: 20210417
  Transmission Date: 20210716
  Serious: Yes (Hospitalization)
  Sender: FDA-Public Use
  Company Number: US-ROCHE-2472183

PATIENT
  Age: 64 Year
  Sex: Male

DRUGS (9)
  1. VALACICLOVIR [Concomitant]
     Active Substance: VALACYCLOVIR HYDROCHLORIDE
     Route: 048
  2. METFORMIN [Concomitant]
     Active Substance: METFORMIN HYDROCHLORIDE
  3. OCREVUS [Suspect]
     Active Substance: OCRELIZUMAB
     Indication: PRIMARY PROGRESSIVE MULTIPLE SCLEROSIS
  4. OCREVUS [Suspect]
     Active Substance: OCRELIZUMAB
     Indication: MULTIPLE SCLEROSIS
     Dosage: TREATMENT RECEIVED ON  09/JUL/2019, 01/AUG/2020, 06/FEB/2021
     Route: 042
     Dates: start: 20190621
  5. ATORVASTATIN [Concomitant]
     Active Substance: ATORVASTATIN
     Route: 048
  6. CLOPIDOGREL [Concomitant]
     Active Substance: CLOPIDOGREL BISULFATE
     Route: 048
  7. GABAPENTINE [Concomitant]
     Active Substance: GABAPENTIN
     Indication: HERPES VIRUS INFECTION
  8. DALFAMPRIDINE. [Concomitant]
     Active Substance: DALFAMPRIDINE
     Indication: FATIGUE
     Route: 048
  9. GABAPENTINE [Concomitant]
     Active Substance: GABAPENTIN
     Indication: NEURALGIA
     Route: 048
     Dates: start: 20190208

REACTIONS (5)
  - Multiple sclerosis relapse [Not Recovered/Not Resolved]
  - Ophthalmic herpes zoster [Recovered/Resolved]
  - Immunodeficiency [Unknown]
  - Dementia [Not Recovered/Not Resolved]
  - Cerebrovascular accident [Not Recovered/Not Resolved]

NARRATIVE: CASE EVENT DATE: 20190801
